FAERS Safety Report 8285076 (Version 4)
Quarter: 2012Q4

REPORT INFORMATION
  Report Type: 
  Country: US (occurrence: US)
  Receive Date: 20111212
  Receipt Date: 20120924
  Transmission Date: 20130627
  Serious: Yes (Hospitalization, Other)
  Sender: FDA-Public Use
  Company Number: US-ASTRAZENECA-2011SE73550

PATIENT
  Age: 67 Year
  Sex: Female

DRUGS (2)
  1. SYMBICORT PMDI [Suspect]
     Dosage: UNKNOWN
     Route: 055
  2. NEXIUM [Suspect]
     Route: 048

REACTIONS (8)
  - Foot fracture [Unknown]
  - Fall [Unknown]
  - Intervertebral disc degeneration [Unknown]
  - Facet joint syndrome [Unknown]
  - Lumbar spinal stenosis [Unknown]
  - Back pain [Unknown]
  - Lumbar radiculopathy [Unknown]
  - Gastrooesophageal reflux disease [Unknown]
